FAERS Safety Report 6123001-4 (Version None)
Quarter: 2009Q1

REPORT INFORMATION
  Report Type: 
  Country: None (occurrence: None)
  Receive Date: 20090318
  Receipt Date: 20090311
  Transmission Date: 20090719
  Serious: Yes (Other)
  Sender: FDA-Public Use
  Company Number: GB-MERCK-0903GBR00037

PATIENT
  Age: 64 Year
  Sex: Male
  Weight: 95 kg

DRUGS (10)
  1. ZETIA [Suspect]
     Indication: HYPERLIPIDAEMIA
     Route: 048
     Dates: start: 20040405
  2. ASPIRIN [Concomitant]
     Route: 048
  3. ATORVASTATIN [Concomitant]
     Route: 048
  4. BENDROFLUMETHIAZIDE [Concomitant]
     Route: 048
  5. BISOPROLOL [Concomitant]
     Route: 048
  6. MOXONIDINE [Concomitant]
     Route: 048
  7. PAROXETINE [Concomitant]
     Route: 048
  8. PERINDOPRIL ERBUMINE [Concomitant]
     Route: 048
  9. VERAPAMIL HYDROCHLORIDE [Concomitant]
     Route: 048
  10. ZOPICLONE [Concomitant]
     Route: 048

REACTIONS (1)
  - PROSTATE CANCER [None]
